FAERS Safety Report 25676422 (Version 1)
Quarter: 2025Q3

REPORT INFORMATION
  Report Type: Spontaneous
  Country: US (occurrence: US)
  Receive Date: 20250813
  Receipt Date: 20250813
  Transmission Date: 20251020
  Serious: No
  Sender: GALDERMA
  Company Number: US-GALDERMA-US2025009836

PATIENT

DRUGS (2)
  1. NEMLUVIO [Suspect]
     Active Substance: NEMOLIZUMAB-ILTO
     Indication: Dermatitis atopic
     Route: 058
  2. NEMLUVIO [Suspect]
     Active Substance: NEMOLIZUMAB-ILTO
     Route: 058

REACTIONS (5)
  - Cold sweat [Recovering/Resolving]
  - Vision blurred [Recovering/Resolving]
  - Brain fog [Recovering/Resolving]
  - Head discomfort [Recovering/Resolving]
  - Fatigue [Recovering/Resolving]
